FAERS Safety Report 8999151 (Version 1)
Quarter: 2013Q1

REPORT INFORMATION
  Report Type: Report from Study
  Country: CA (occurrence: CA)
  Receive Date: 20130103
  Receipt Date: 20130103
  Transmission Date: 20140127
  Serious: Yes (Hospitalization, Other)
  Sender: FDA-Public Use
  Company Number: CA-JNJFOC-20121210777

PATIENT
  Age: 56 None
  Sex: Female
  Weight: 37.65 kg

DRUGS (8)
  1. REMICADE [Suspect]
     Indication: RHEUMATOID ARTHRITIS
     Route: 042
     Dates: start: 20090323
  2. METHOTREXATE [Concomitant]
     Route: 065
  3. SYNTHROID [Concomitant]
     Route: 065
  4. FOLIC ACID [Concomitant]
     Route: 065
  5. VITAMIN D [Concomitant]
     Route: 065
  6. FERROUS SULPHATE [Concomitant]
     Route: 065
  7. PANTOPRAZOLE [Concomitant]
     Route: 065
  8. DICLOFENAC [Concomitant]
     Route: 065

REACTIONS (5)
  - Wound [Not Recovered/Not Resolved]
  - Weight decreased [Not Recovered/Not Resolved]
  - Purulent discharge [Not Recovered/Not Resolved]
  - Cachexia [Not Recovered/Not Resolved]
  - Depression [Not Recovered/Not Resolved]
